FAERS Safety Report 16947087 (Version 1)
Quarter: 2019Q4

REPORT INFORMATION
  Report Type: Spontaneous
  Country: US (occurrence: US)
  Receive Date: 20191022
  Receipt Date: 20191022
  Transmission Date: 20200122
  Serious: Yes (Hospitalization)
  Sender: FDA-Public Use
  Company Number: US-TEVA-2019-US-1125501

PATIENT
  Age: 72 Year
  Sex: Female

DRUGS (1)
  1. AMLODIPINE [Suspect]
     Active Substance: AMLODIPINE BESYLATE
     Indication: SUICIDE ATTEMPT
     Dosage: INGESTED 100 TABLETS OF 5MG
     Route: 048

REACTIONS (9)
  - Lethargy [Unknown]
  - Intentional overdose [Unknown]
  - Aspartate aminotransferase abnormal [Unknown]
  - Blood pressure decreased [Recovered/Resolved]
  - Suicide attempt [Recovering/Resolving]
  - Toxicity to various agents [Unknown]
  - Dizziness [Unknown]
  - Blood sodium abnormal [Unknown]
  - Alanine aminotransferase abnormal [Unknown]
